FAERS Safety Report 7571946-0 (Version None)
Quarter: 2011Q2

REPORT INFORMATION
  Report Type: 
  Country: None (occurrence: None)
  Receive Date: 20110624
  Receipt Date: 20110222
  Transmission Date: 20111010
  Serious: No
  Sender: FDA-Public Use
  Company Number: A0914874A

PATIENT
  Age: 63 Year
  Sex: Female

DRUGS (4)
  1. TYLENOL-500 [Concomitant]
  2. VERAMYST [Suspect]
     Indication: SINUS DISORDER
     Dosage: 2PUFF PER DAY
     Route: 045
     Dates: start: 20100101
  3. AMITRIPTYLINE HCL [Concomitant]
  4. METOPROLOL TARTRATE [Concomitant]

REACTIONS (1)
  - EPISTAXIS [None]
